FAERS Safety Report 6852581-6 (Version None)
Quarter: 2010Q3

REPORT INFORMATION
  Report Type: 
  Country: None (occurrence: None)
  Receive Date: 20100717
  Receipt Date: 20071115
  Transmission Date: 20110219
  Serious: No
  Sender: FDA-Public Use
  Company Number: US-PFIZER INC-2007098301

PATIENT
  Sex: Male

DRUGS (1)
  1. CHANTIX [Suspect]

REACTIONS (6)
  - BONE SCAN ABNORMAL [None]
  - DIVERTICULUM [None]
  - GASTRITIS [None]
  - INFECTION [None]
  - OEDEMA [None]
  - PAIN IN EXTREMITY [None]
